FAERS Safety Report 13467576 (Version 2)
Quarter: 2017Q3

REPORT INFORMATION
  Report Type: Spontaneous
  Country: US (occurrence: US)
  Receive Date: 20170421
  Receipt Date: 20170726
  Transmission Date: 20171127
  Serious: No
  Sender: FDA-Public Use
  Company Number: US-PFIZER INC-2017172916

PATIENT
  Age: 73 Year
  Sex: Male
  Weight: 111.1 kg

DRUGS (2)
  1. NEURONTIN [Suspect]
     Active Substance: GABAPENTIN
     Indication: POST HERPETIC NEURALGIA
     Dosage: TAKES 400MG A DAY ON AVERAGE, SOMETIMES HE TAKES 600MG OR 700MG A DAY
  2. NEURONTIN [Suspect]
     Active Substance: GABAPENTIN
     Indication: NERVE INJURY
     Dosage: 2000 MG, 1X/DAY
     Dates: start: 201503

REACTIONS (1)
  - Drug ineffective [Unknown]
